FAERS Safety Report 16688456 (Version 2)
Quarter: 2022Q2

REPORT INFORMATION
  Report Type: Spontaneous
  Country: DE (occurrence: DE)
  Receive Date: 20190809
  Receipt Date: 20220525
  Transmission Date: 20220720
  Serious: Yes (Death, Other)
  Sender: FDA-Public Use
  Company Number: DE-LAV-2019-00110

PATIENT
  Age: 73 Year
  Sex: Female
  Weight: 76 kg

DRUGS (7)
  1. FENTANYL [Interacting]
     Active Substance: FENTANYL
     Indication: Product used for unknown indication
     Dosage: 50 MICROG/H, 2DF
     Route: 062
  2. FENTANYL [Interacting]
     Active Substance: FENTANYL
     Dosage: 50 MICROG/H, 2DF
     Route: 062
  3. ZOPICLONE [Interacting]
     Active Substance: ZOPICLONE
     Indication: Product used for unknown indication
     Route: 065
  4. AMLODIPINE [Interacting]
     Active Substance: AMLODIPINE BESYLATE
     Indication: Product used for unknown indication
     Route: 065
  5. CANDESARTAN [Suspect]
     Active Substance: CANDESARTAN
     Indication: Product used for unknown indication
     Route: 065
  6. METOPROLOL [Suspect]
     Active Substance: METOPROLOL
     Indication: Product used for unknown indication
     Route: 065
  7. MIRTAZAPINE [Interacting]
     Active Substance: MIRTAZAPINE
     Indication: Product used for unknown indication
     Route: 065

REACTIONS (7)
  - Toxicity to various agents [Fatal]
  - Drug abuse [Fatal]
  - Asphyxia [Fatal]
  - Drug interaction [Fatal]
  - Intentional product misuse [Fatal]
  - Urinary retention [Unknown]
  - Pulmonary oedema [Unknown]
